FAERS Safety Report 19499783 (Version 1)
Quarter: 2021Q3

REPORT INFORMATION
  Report Type: Spontaneous
  Country: FR (occurrence: FR)
  Receive Date: 20210707
  Receipt Date: 20210707
  Transmission Date: 20211014
  Serious: Yes (Other)
  Sender: FDA-Public Use
  Company Number: FR-TEVA-2021-FR-1930009

PATIENT
  Age: 81 Year
  Sex: Male
  Weight: 69 kg

DRUGS (5)
  1. BISOCE 1,25 MG, COMPRIME PELLICULE [Suspect]
     Active Substance: BISOPROLOL FUMARATE
  2. COMIRNATY [Suspect]
     Active Substance: TOZINAMERAN
     Indication: COVID-19 IMMUNISATION
     Dosage: 0.3 ML
     Route: 030
     Dates: start: 20210303, end: 20210303
  3. ALFUZOSINE (CHLORHYDRATE D) [Suspect]
     Active Substance: ALFUZOSIN HYDROCHLORIDE
     Route: 065
  4. ATORVASTATINE [Suspect]
     Active Substance: ATORVASTATIN
     Route: 065
  5. KARDEGIC [Suspect]
     Active Substance: ASPIRIN DL-LYSINE
     Dosage: POWDER FOR ORAL SOLUTION IN SACHET?DOSE , 75 MG

REACTIONS (1)
  - Bicytopenia [Recovering/Resolving]

NARRATIVE: CASE EVENT DATE: 20210421
